FAERS Safety Report 17554177 (Version 1)
Quarter: 2020Q1

REPORT INFORMATION
  Report Type: Spontaneous
  Country: US (occurrence: US)
  Receive Date: 20200318
  Receipt Date: 20200318
  Transmission Date: 20200409
  Serious: No
  Sender: FDA-Public Use
  Company Number: US-ASTRAZENECA-2020SE35571

PATIENT
  Age: 25987 Day
  Sex: Female
  Weight: 115.7 kg

DRUGS (9)
  1. OMEPRAZOLE. [Suspect]
     Active Substance: OMEPRAZOLE
     Route: 048
     Dates: start: 2004
  2. DIGOXIN. [Concomitant]
     Active Substance: DIGOXIN
     Indication: CARDIAC DISORDER
     Route: 048
  3. CLONIDINE. [Concomitant]
     Active Substance: CLONIDINE
  4. POTASSIUM [Concomitant]
     Active Substance: POTASSIUM
     Route: 048
  5. WARFARIN [Concomitant]
     Active Substance: WARFARIN
     Route: 048
  6. TRULICIY [Concomitant]
  7. FENOFIBRATE. [Concomitant]
     Active Substance: FENOFIBRATE
     Route: 048
  8. TOPROL XL [Suspect]
     Active Substance: METOPROLOL SUCCINATE
     Indication: CARDIAC DISORDER
     Route: 048
     Dates: start: 2004
  9. BYDUREON [Suspect]
     Active Substance: EXENATIDE
     Indication: TYPE 2 DIABETES MELLITUS
     Route: 058
     Dates: start: 20200217

REACTIONS (12)
  - Heart rate increased [Unknown]
  - Body height decreased [Unknown]
  - Injection site pruritus [Unknown]
  - Atrial flutter [Unknown]
  - Needle issue [Unknown]
  - Injection site indentation [Unknown]
  - Injection site erythema [Unknown]
  - Injection site scab [Unknown]
  - Arrhythmia [Unknown]
  - Atrial fibrillation [Unknown]
  - Sinus node dysfunction [Unknown]
  - Injection site mass [Unknown]

NARRATIVE: CASE EVENT DATE: 20200302
